FAERS Safety Report 10485617 (Version 1)
Quarter: 2014Q4

REPORT INFORMATION
  Report Type: Spontaneous
  Country: GB (occurrence: GB)
  Receive Date: 20141001
  Receipt Date: 20141001
  Transmission Date: 20150528
  Serious: Yes (Other)
  Sender: FDA-Public Use
  Company Number: GB-MICRO LABS LIMITED-BB2014-00790

PATIENT
  Age: 48 Year
  Sex: Female
  Weight: 69.85 kg

DRUGS (4)
  1. PARACETAMOL [Concomitant]
     Active Substance: ACETAMINOPHEN
     Indication: PRODUCT USED FOR UNKNOWN INDICATION
     Route: 065
  2. PHENYLEPHRINE [Concomitant]
     Active Substance: PHENYLEPHRINE\PHENYLEPHRINE HYDROCHLORIDE
     Indication: PRODUCT USED FOR UNKNOWN INDICATION
     Route: 065
  3. LOSARTAN [Suspect]
     Active Substance: LOSARTAN
     Indication: ESSENTIAL HYPERTENSION
     Route: 048
     Dates: start: 20140820, end: 20140917
  4. LISINOPRIL. [Suspect]
     Active Substance: LISINOPRIL
     Indication: ESSENTIAL HYPERTENSION
     Route: 048
     Dates: start: 20131209, end: 20140506

REACTIONS (8)
  - Malaise [Recovering/Resolving]
  - Respiratory tract infection [Recovering/Resolving]
  - Feeling jittery [Recovering/Resolving]
  - Dizziness [Recovering/Resolving]
  - Otitis media [Recovering/Resolving]
  - Upper-airway cough syndrome [Recovering/Resolving]
  - Pleurisy [Recovered/Resolved]
  - Cough [Recovering/Resolving]
